FAERS Safety Report 24650954 (Version 1)
Quarter: 2024Q4

REPORT INFORMATION
  Report Type: Spontaneous
  Country: US (occurrence: US)
  Receive Date: 20241122
  Receipt Date: 20241122
  Transmission Date: 20250114
  Serious: No
  Sender: ABBVIE
  Company Number: US-ABBVIE-6007370

PATIENT
  Age: 54 Year
  Sex: Male
  Weight: 88.45 kg

DRUGS (2)
  1. SKYRIZI [Suspect]
     Active Substance: RISANKIZUMAB-RZAA
     Indication: Psoriasis
     Dosage: FOAM STRENGTH: 150 MG
     Route: 058
     Dates: start: 202305
  2. MELOXICAM [Concomitant]
     Active Substance: MELOXICAM
     Indication: Back pain

REACTIONS (3)
  - Injection site mass [Recovered/Resolved]
  - Injection site bruising [Recovering/Resolving]
  - Injection site haemorrhage [Recovered/Resolved]

NARRATIVE: CASE EVENT DATE: 20241030
